FAERS Safety Report 9621639 (Version 2)
Quarter: 2014Q1

REPORT INFORMATION
  Report Type: Spontaneous
  Country: FR (occurrence: FR)
  Receive Date: 20131015
  Receipt Date: 20140107
  Transmission Date: 20141002
  Serious: Yes (Life-Threatening, Hospitalization)
  Sender: FDA-Public Use
  Company Number: FR-BAYER-2013-122455

PATIENT
  Age: 66 Year
  Sex: Male

DRUGS (10)
  1. NEXAVAR [Suspect]
     Indication: HEPATOCELLULAR CARCINOMA
     Dosage: 400 MG, QD
     Route: 048
     Dates: start: 20130530, end: 20130801
  2. QUESTRAN [Concomitant]
  3. ZOPICLONE [Concomitant]
  4. LASILIX [Concomitant]
  5. ATARAX [Concomitant]
  6. INEXIUM [Concomitant]
  7. FORLAX [Concomitant]
     Dosage: PRN
  8. OXYNORM [Concomitant]
     Dosage: PRN
  9. OXYCONTIN [Concomitant]
  10. INNOHEP [Concomitant]

REACTIONS (2)
  - Vascular rupture [Recovered/Resolved]
  - Haemothorax [Recovered/Resolved]
